FAERS Safety Report 9186231 (Version 2)
Quarter: 2013Q2

REPORT INFORMATION
  Report Type: Spontaneous
  Country: CN (occurrence: CN)
  Receive Date: 20130325
  Receipt Date: 20130402
  Transmission Date: 20140414
  Serious: Yes (Hospitalization)
  Sender: FDA-Public Use
  Company Number: CN-ASTRAZENECA-2013SE16765

PATIENT
  Age: 57 Year
  Sex: Female

DRUGS (3)
  1. CRESTOR [Suspect]
     Indication: HYPERLIPIDAEMIA
     Route: 048
     Dates: start: 201203, end: 201205
  2. CRESTOR [Interacting]
     Indication: HYPERLIPIDAEMIA
     Route: 048
     Dates: start: 201205, end: 201302
  3. CHINESE MEDICINE [Interacting]
     Indication: COUGH
     Dates: start: 201212

REACTIONS (8)
  - Drug interaction [Unknown]
  - Cough [Recovered/Resolved]
  - Pain [Unknown]
  - Discomfort [Recovered/Resolved]
  - Eating disorder [Recovered/Resolved]
  - Abdominal discomfort [Unknown]
  - Hepatic function abnormal [Recovering/Resolving]
  - Fatigue [Recovered/Resolved]
